FAERS Safety Report 11243524 (Version 1)
Quarter: 2015Q3

REPORT INFORMATION
  Report Type: Report from Study
  Country: ES (occurrence: ES)
  Receive Date: 20150707
  Receipt Date: 20150707
  Transmission Date: 20151125
  Serious: Yes (Other)
  Sender: FDA-Public Use
  Company Number: ES-MYLANLABS-2015M1022077

PATIENT

DRUGS (5)
  1. LEFLUNOMIDE. [Concomitant]
     Active Substance: LEFLUNOMIDE
     Indication: RHEUMATOID ARTHRITIS
     Dosage: 1 DF, QD
  2. CEMIDON [Concomitant]
     Active Substance: ISONIAZID
     Indication: SKIN TEST POSITIVE
     Dosage: 1 DF, QD
  3. PREDNISONE. [Concomitant]
     Active Substance: PREDNISONE
     Indication: RHEUMATOID ARTHRITIS
     Dosage: 5 MG, QD
  4. METHOTREXATE SODIUM. [Suspect]
     Active Substance: METHOTREXATE SODIUM
     Indication: RHEUMATOID ARTHRITIS
     Dosage: UNK
     Route: 065
  5. EXXIV [Concomitant]
     Active Substance: ETORICOXIB
     Indication: ANALGESIC THERAPY
     Dosage: UNK

REACTIONS (3)
  - Nausea [Unknown]
  - Rheumatoid arthritis [Unknown]
  - Condition aggravated [Unknown]
